FAERS Safety Report 18716623 (Version 1)
Quarter: 2021Q1

REPORT INFORMATION
  Report Type: Spontaneous
  Country: US (occurrence: US)
  Receive Date: 20210107
  Receipt Date: 20210107
  Transmission Date: 20210419
  Serious: No
  Sender: FDA-Public Use
  Company Number: None

PATIENT
  Age: 37 Year
  Sex: Female
  Weight: 78.75 kg

DRUGS (2)
  1. AFTER HOURS LIP BALM [Suspect]
     Active Substance: MINERAL OIL\PARAFFIN\PETROLATUM
     Indication: LIP DRY
     Route: 061
  2. PRENATAL VITAMINS [Concomitant]
     Active Substance: VITAMINS

REACTIONS (2)
  - Maternal exposure during pregnancy [None]
  - Product formulation issue [None]

NARRATIVE: CASE EVENT DATE: 20210106
